FAERS Safety Report 7691186-4 (Version None)
Quarter: 2011Q3

REPORT INFORMATION
  Report Type: 
  Country: None (occurrence: None)
  Receive Date: 20110815
  Receipt Date: 20110802
  Transmission Date: 20111222
  Serious: No
  Sender: FDA-Public Use
  Company Number: LTI2011A00051

PATIENT
  Age: 64 Year
  Sex: Male

DRUGS (6)
  1. ACTOS [Suspect]
     Indication: TYPE 2 DIABETES MELLITUS
     Dosage: 30 MG (30 MG,1 IN 1 D)
     Route: 048
     Dates: start: 20070910, end: 20090401
  2. IRBESARTAN [Concomitant]
  3. AMARYL [Concomitant]
  4. STAGID (METFORMIN EMBONATE) [Concomitant]
  5. CIALIS [Concomitant]
  6. METFORMIN HCL [Concomitant]

REACTIONS (2)
  - BLADDER TRANSITIONAL CELL CARCINOMA [None]
  - NON-HODGKIN'S LYMPHOMA [None]
